FAERS Safety Report 4833116-6 (Version None)
Quarter: 2005Q4

REPORT INFORMATION
  Report Type: 
  Country: None (occurrence: None)
  Receive Date: 20051117
  Receipt Date: 20051104
  Transmission Date: 20060501
  Serious: Yes (Disabling)
  Sender: FDA-Public Use
  Company Number: 2005153918

PATIENT
  Sex: Female
  Weight: 72.5755 kg

DRUGS (12)
  1. ANTIVERT [Suspect]
     Indication: VERTIGO
  2. DRAMAMINE [Suspect]
     Indication: ILL-DEFINED DISORDER
  3. BENADRYL [Suspect]
     Indication: URTICARIA
  4. PENICILLIN G [Suspect]
     Indication: ASTHMA
     Dates: start: 20051001, end: 20051001
  5. PRILOSEC [Suspect]
     Indication: HIATUS HERNIA
  6. PREVACID [Suspect]
     Indication: HIATUS HERNIA
  7. PREDNISONE [Concomitant]
  8. DARVOCET-N 100 [Concomitant]
  9. KLONOPIN [Concomitant]
  10. LEXAPRO [Concomitant]
  11. ATENOLOL [Concomitant]
  12. AXID [Concomitant]

REACTIONS (26)
  - AMNESIA [None]
  - ANXIETY [None]
  - ARTHRALGIA [None]
  - ASTHMA [None]
  - BACK PAIN [None]
  - CHRONIC FATIGUE SYNDROME [None]
  - DEPRESSION [None]
  - DISTURBANCE IN SOCIAL BEHAVIOUR [None]
  - DRUG INEFFECTIVE [None]
  - DYSSTASIA [None]
  - FALL [None]
  - GASTRITIS [None]
  - GASTROOESOPHAGEAL REFLUX DISEASE [None]
  - HERPES ZOSTER [None]
  - HIATUS HERNIA [None]
  - HIP FRACTURE [None]
  - HYPERSENSITIVITY [None]
  - INSOMNIA [None]
  - INTERVERTEBRAL DISC PROTRUSION [None]
  - NERVOUSNESS [None]
  - ORAL FUNGAL INFECTION [None]
  - OSTEOARTHRITIS [None]
  - PANIC ATTACK [None]
  - PNEUMONIA [None]
  - REACTION TO DRUG EXCIPIENTS [None]
  - URTICARIA [None]
